FAERS Safety Report 7552137-6 (Version None)
Quarter: 2011Q2

REPORT INFORMATION
  Report Type: 
  Country: None (occurrence: None)
  Receive Date: 20110616
  Receipt Date: 20110525
  Transmission Date: 20111010
  Serious: Yes (Hospitalization, Other)
  Sender: FDA-Public Use
  Company Number: US-BAYER-2011-020331

PATIENT
  Age: 22 Year
  Sex: Female
  Weight: 68.027 kg

DRUGS (9)
  1. YAZ [Suspect]
     Indication: POLYCYSTIC OVARIES
  2. ASCORBIC ACID [Concomitant]
  3. MULTI-VITAMINS [Concomitant]
  4. YAZ [Suspect]
     Indication: CONTRACEPTION
     Dosage: UNK
     Route: 048
     Dates: start: 20080601, end: 20090401
  5. YASMIN [Suspect]
     Indication: CONTRACEPTION
     Dosage: UNK
     Route: 048
     Dates: start: 20060901, end: 20080101
  6. YAZ [Suspect]
     Indication: HORMONE LEVEL ABNORMAL
  7. YASMIN [Suspect]
     Indication: HORMONE LEVEL ABNORMAL
  8. ORTHO TRI-CYCLEN LO [Concomitant]
     Dosage: UNK
     Dates: start: 20060101, end: 20060101
  9. YASMIN [Suspect]
     Indication: POLYCYSTIC OVARIES

REACTIONS (7)
  - PAIN [None]
  - GALLBLADDER DISORDER [None]
  - ANXIETY [None]
  - ABDOMINAL PAIN [None]
  - INJURY [None]
  - ANHEDONIA [None]
  - POST CHOLECYSTECTOMY SYNDROME [None]
